FAERS Safety Report 18682871 (Version 3)
Quarter: 2021Q1

REPORT INFORMATION
  Report Type: Spontaneous
  Country: JP (occurrence: JP)
  Receive Date: 20201230
  Receipt Date: 20210331
  Transmission Date: 20210419
  Serious: Yes (Hospitalization)
  Sender: FDA-Public Use
  Company Number: JP-REGENERON PHARMACEUTICALS, INC.-2020-97485

PATIENT

DRUGS (41)
  1. POVIDONE?IODINE. [Concomitant]
     Active Substance: POVIDONE-IODINE
     Dosage: RIGHT EYE, AS NEEDED
     Route: 031
     Dates: start: 20160617
  2. LEVOFLOXACIN. [Concomitant]
     Active Substance: LEVOFLOXACIN
     Indication: ANTI-INFECTIVE THERAPY
     Dosage: LEFT EYE, AS NEEDED
     Route: 031
     Dates: start: 20200804
  3. EYLEA [Suspect]
     Active Substance: AFLIBERCEPT
     Dosage: DAILY DOSE 2 MG(0.05ML) RIGHT EYE
     Route: 031
     Dates: start: 20160520, end: 20160520
  4. EYLEA [Suspect]
     Active Substance: AFLIBERCEPT
     Dosage: DAILY DOSE 2 MG(0.05ML) RIGHT EYE
     Route: 031
     Dates: start: 20170309, end: 20170309
  5. GATIFLO [Concomitant]
     Active Substance: GATIFLOXACIN
     Dosage: RIGHT EYE, AS NEEDED
     Route: 031
     Dates: start: 20170306, end: 20170312
  6. XYLOCAINE [Concomitant]
     Active Substance: LIDOCAINE HYDROCHLORIDE
     Dosage: LEFT EYE, AS NEEDED
     Route: 031
     Dates: start: 20200804
  7. POVIDONE?IODINE. [Concomitant]
     Active Substance: POVIDONE-IODINE
     Dosage: RIGHT EYE, AS NEEDED
     Route: 031
     Dates: start: 20200818
  8. FLUMETHOLON [Concomitant]
     Active Substance: FLUOROMETHOLONE
     Dosage: RIGHT EYE, AS NEEDED
     Route: 031
     Dates: start: 20200818
  9. PATANOL [Concomitant]
     Active Substance: OLOPATADINE HYDROCHLORIDE
     Indication: CONJUNCTIVITIS ALLERGIC
     Dosage: UNK
     Route: 031
     Dates: start: 2019, end: 2019
  10. EYLEA [Suspect]
     Active Substance: AFLIBERCEPT
     Dosage: DAILY DOSE 2 MG(0.05ML) RIGHT EYE
     Route: 031
     Dates: start: 20190109, end: 20190109
  11. GATIFLO [Concomitant]
     Active Substance: GATIFLOXACIN
     Dosage: RIGHT EYE, AS NEEDED
     Route: 031
     Dates: start: 20190106, end: 20190112
  12. GATIFLO [Concomitant]
     Active Substance: GATIFLOXACIN
     Indication: ANTI-INFECTIVE THERAPY
     Dosage: RIGHT EYE, AS NEEDED
     Route: 031
     Dates: start: 20160411, end: 20160417
  13. XYLOCAINE [Concomitant]
     Active Substance: LIDOCAINE HYDROCHLORIDE
     Indication: ANAESTHETIC OPHTHALMIC PROCEDURE
     Dosage: RIGHT EYE, AS NEEDED
     Route: 031
     Dates: start: 20160414
  14. POVIDONE?IODINE. [Concomitant]
     Active Substance: POVIDONE-IODINE
     Dosage: RIGHT EYE, AS NEEDED
     Route: 031
     Dates: start: 20180509
  15. POVIDONE?IODINE. [Concomitant]
     Active Substance: POVIDONE-IODINE
     Dosage: RIGHT EYE, AS NEEDED
     Route: 031
     Dates: start: 20190109
  16. EYLEA [Suspect]
     Active Substance: AFLIBERCEPT
     Dosage: DAILY DOSE 2 MG(0.05ML) RIGHT EYE
     Route: 031
     Dates: start: 20160617, end: 20160617
  17. GATIFLO [Concomitant]
     Active Substance: GATIFLOXACIN
     Dosage: RIGHT EYE, AS NEEDED
     Route: 031
     Dates: start: 20160614, end: 20160620
  18. GATIFLO [Concomitant]
     Active Substance: GATIFLOXACIN
     Dosage: RIGHT EYE, AS NEEDED
     Route: 031
     Dates: start: 20200815, end: 20200817
  19. POVIDONE?IODINE. [Concomitant]
     Active Substance: POVIDONE-IODINE
     Indication: ANTI-INFECTIVE THERAPY
     Dosage: RIGHT EYE, AS NEEDED
     Route: 031
     Dates: start: 20160414
  20. POVIDONE?IODINE. [Concomitant]
     Active Substance: POVIDONE-IODINE
     Dosage: LEFT EYE, AS NEEDED
     Route: 031
     Dates: start: 20200804
  21. SANCOBA [Concomitant]
     Active Substance: CYANOCOBALAMIN
     Indication: ASTHENOPIA
     Dosage: AS NEEDED
     Route: 031
     Dates: start: 2016, end: 2020
  22. GATIFLO [Concomitant]
     Active Substance: GATIFLOXACIN
     Dosage: RIGHT EYE, AS NEEDED
     Route: 031
     Dates: start: 20180506, end: 20180512
  23. GATIFLO [Concomitant]
     Active Substance: GATIFLOXACIN
     Dosage: LEFT EYE, AS NEEDED
     Route: 031
     Dates: start: 20200801, end: 20200803
  24. XYLOCAINE [Concomitant]
     Active Substance: LIDOCAINE HYDROCHLORIDE
     Dosage: RIGHT EYE, AS NEEDED
     Route: 031
     Dates: start: 20180509
  25. LEVOFLOXACIN. [Concomitant]
     Active Substance: LEVOFLOXACIN
     Dosage: RIGHT EYE, AS NEEDED
     Route: 031
     Dates: start: 20200818
  26. FLUMETHOLON [Concomitant]
     Active Substance: FLUOROMETHOLONE
     Indication: EYE INFLAMMATION
     Dosage: LEFT EYE, AS NEEDED
     Route: 031
     Dates: start: 20200804
  27. LINOLOSAL [Concomitant]
     Active Substance: BETAMETHASONE SODIUM PHOSPHATE
     Dosage: RIGHT EYE, AS NEEDED
     Route: 031
     Dates: start: 20200818
  28. BRONUCK [Concomitant]
     Active Substance: BROMFENAC SODIUM
     Indication: EYE INFLAMMATION
     Dosage: LEFT EYE, AS NEEDED
     Route: 031
     Dates: start: 20200804
  29. BRONUCK [Concomitant]
     Active Substance: BROMFENAC SODIUM
     Dosage: RIGHT EYE, AS NEEDED
     Route: 031
     Dates: start: 20200818
  30. HYALEIN [Concomitant]
     Active Substance: HYALURONATE SODIUM
     Indication: DRY EYE
     Dosage: UNK
     Route: 031
     Dates: start: 2019, end: 2020
  31. GATIFLO [Concomitant]
     Active Substance: GATIFLOXACIN
     Dosage: RIGHT EYE, AS NEEDED
     Route: 031
     Dates: start: 20160517, end: 20160523
  32. XYLOCAINE [Concomitant]
     Active Substance: LIDOCAINE HYDROCHLORIDE
     Dosage: RIGHT EYE, AS NEEDED
     Route: 031
     Dates: start: 20200818
  33. POVIDONE?IODINE. [Concomitant]
     Active Substance: POVIDONE-IODINE
     Dosage: RIGHT EYE, AS NEEDED
     Route: 031
     Dates: start: 20160520
  34. POVIDONE?IODINE. [Concomitant]
     Active Substance: POVIDONE-IODINE
     Dosage: RIGHT EYE, AS NEEDED
     Route: 031
     Dates: start: 20170309
  35. EYLEA [Suspect]
     Active Substance: AFLIBERCEPT
     Indication: AGE-RELATED MACULAR DEGENERATION
     Dosage: DAILY DOSE 2 MG(0.05ML) RIGHT EYE
     Route: 031
     Dates: start: 20160414, end: 20160414
  36. EYLEA [Suspect]
     Active Substance: AFLIBERCEPT
     Dosage: DAILY DOSE 2 MG(0.05ML) RIGHT EYE
     Route: 031
     Dates: start: 20180509, end: 20180509
  37. XYLOCAINE [Concomitant]
     Active Substance: LIDOCAINE HYDROCHLORIDE
     Dosage: RIGHT EYE, AS NEEDED
     Route: 031
     Dates: start: 20160520
  38. XYLOCAINE [Concomitant]
     Active Substance: LIDOCAINE HYDROCHLORIDE
     Dosage: RIGHT EYE, AS NEEDED
     Route: 031
     Dates: start: 20160617
  39. XYLOCAINE [Concomitant]
     Active Substance: LIDOCAINE HYDROCHLORIDE
     Dosage: RIGHT EYE, AS NEEDED
     Route: 031
     Dates: start: 20170309
  40. XYLOCAINE [Concomitant]
     Active Substance: LIDOCAINE HYDROCHLORIDE
     Dosage: RIGHT EYE, AS NEEDED
     Route: 031
     Dates: start: 20190109
  41. LINOLOSAL [Concomitant]
     Active Substance: BETAMETHASONE SODIUM PHOSPHATE
     Indication: EYE INFLAMMATION
     Dosage: LEFT EYE, AS NEEDED
     Route: 031
     Dates: start: 20200804

REACTIONS (6)
  - Cerebral ventricular rupture [Unknown]
  - Ruptured cerebral aneurysm [Recovered/Resolved with Sequelae]
  - Disturbance in attention [Unknown]
  - Memory impairment [Unknown]
  - Cognitive disorder [Unknown]
  - Subarachnoid haemorrhage [Recovered/Resolved with Sequelae]

NARRATIVE: CASE EVENT DATE: 202010
